FAERS Safety Report 25720258 (Version 1)
Quarter: 2025Q3

REPORT INFORMATION
  Report Type: Spontaneous
  Country: EU (occurrence: EU)
  Receive Date: 20250825
  Receipt Date: 20250825
  Transmission Date: 20251021
  Serious: Yes (Other)
  Sender: CHEPLAPHARM
  Company Number: None

PATIENT
  Age: 49 Year
  Sex: Male

DRUGS (9)
  1. CLONAZEPAM [Interacting]
     Active Substance: CLONAZEPAM
     Indication: Sciatica
     Dosage: TID?DAILY DOSE: 15 DROP
     Route: 048
     Dates: start: 20250602
  2. ARCOXIA [Interacting]
     Active Substance: ETORICOXIB
     Indication: Sciatica
     Dosage: FILM-COATED TABLETS?DAILY DOSE: 120 MILLIGRAM
     Route: 048
     Dates: start: 20250602
  3. METHOCARBAMOL [Interacting]
     Active Substance: METHOCARBAMOL
     Indication: Sciatica
     Dosage: TID?DAILY DOSE: 1500 MILLIGRAM
     Route: 048
     Dates: start: 20250602
  4. PREGABALIN [Interacting]
     Active Substance: PREGABALIN
     Indication: Sciatica
     Dosage: BID?DAILY DOSE: 100 MILLIGRAM
     Route: 048
     Dates: start: 20250602
  5. TRAMADOL HYDROCHLORIDE [Interacting]
     Active Substance: TRAMADOL HYDROCHLORIDE
     Indication: Sciatica
     Dosage: TID?DAILY DOSE: 300 MILLIGRAM
     Route: 048
     Dates: start: 20250602
  6. DIETARY SUPPLEMENT [Suspect]
     Active Substance: DIETARY SUPPLEMENT
  7. ACETAMINOPHEN [Concomitant]
     Active Substance: ACETAMINOPHEN
     Indication: Sciatica
     Dosage: TID?DAILY DOSE: 3 GRAM
     Route: 048
     Dates: start: 20250602
  8. DICLOFENAC [Concomitant]
     Active Substance: DICLOFENAC
     Indication: Sciatica
  9. DICLOFENAC [Concomitant]
     Active Substance: DICLOFENAC
     Indication: Hernia

REACTIONS (4)
  - Speech disorder [Unknown]
  - Dizziness [Unknown]
  - Somnolence [Unknown]
  - Off label use [Unknown]

NARRATIVE: CASE EVENT DATE: 20250602
